FAERS Safety Report 9928231 (Version 1)
Quarter: 2014Q1

REPORT INFORMATION
  Report Type: Spontaneous
  Country: US (occurrence: US)
  Receive Date: 20140227
  Receipt Date: 20140227
  Transmission Date: 20141002
  Serious: Yes (Other)
  Sender: FDA-Public Use
  Company Number: US-TEVA-464394USA

PATIENT
  Age: 57 Year
  Sex: Female

DRUGS (1)
  1. COPAXONE [Suspect]
     Indication: MULTIPLE SCLEROSIS
     Dates: start: 20090728

REACTIONS (5)
  - Injection site injury [Unknown]
  - Injection site reaction [Unknown]
  - Wrong technique in drug usage process [Unknown]
  - Wound [Unknown]
  - Injection site scab [Unknown]
